FAERS Safety Report 8602145-9 (Version None)
Quarter: 2012Q3

REPORT INFORMATION
  Report Type: 
  Country: None (occurrence: None)
  Receive Date: 20120817
  Receipt Date: 20120808
  Transmission Date: 20120928
  Serious: Yes (Other)
  Sender: FDA-Public Use
  Company Number: US-ASTRAZENECA-2012SE56280

PATIENT
  Age: 53 Year
  Sex: Female

DRUGS (1)
  1. CRESTOR [Suspect]
     Route: 048

REACTIONS (5)
  - PERIPHERAL ARTERIAL OCCLUSIVE DISEASE [None]
  - NASOPHARYNGITIS [None]
  - AORTIC OCCLUSION [None]
  - MALAISE [None]
  - MUSCLE SPASMS [None]
